FAERS Safety Report 6028260-4 (Version None)
Quarter: 2008Q4

REPORT INFORMATION
  Report Type: 
  Country: None (occurrence: None)
  Receive Date: 20081231
  Receipt Date: 20081231
  Transmission Date: 20090506
  Serious: Yes (Hospitalization)
  Sender: FDA-Public Use
  Company Number: None

PATIENT
  Age: 60 Year
  Sex: Male
  Weight: 99.8 kg

DRUGS (2)
  1. RIBAVIRIN [Suspect]
     Indication: HEPATITIS C
     Dosage: 600 MG BID PO
     Route: 048
     Dates: start: 20080725, end: 20080917
  2. PEG-INTRON [Suspect]
     Dosage: 180 MCG QWEEK SQ
     Route: 058
     Dates: start: 20080725, end: 20080917

REACTIONS (1)
  - PANCYTOPENIA [None]
